FAERS Safety Report 9245644 (Version 1)
Quarter: 2013Q1

REPORT INFORMATION
  Report Type: Spontaneous
  Country: US (occurrence: None)
  Receive Date: 20121130
  Receipt Date: 20121130
  Transmission Date: 20140127
  Serious: Yes (Disabling, Other)
  Sender: FDA-Public Use
  Company Number: 1203USA03379

PATIENT
  Age: 66 Year
  Sex: Female
  Weight: 73.5 kg

DRUGS (2)
  1. FOSAMAX [Suspect]
     Indication: OSTEOPOROSIS
     Route: 048
     Dates: start: 2003, end: 2008
  2. FOSAMAX [Suspect]
     Indication: BONE LOSS
     Route: 048
     Dates: start: 2003, end: 2008

REACTIONS (16)
  - Osteonecrosis of jaw [None]
  - Aortic valve calcification [None]
  - Hypertension [None]
  - Thyroid disorder [None]
  - Periodontitis [None]
  - Impaired healing [None]
  - Dental implantation [None]
  - Depression [None]
  - Endodontic procedure [None]
  - Toothache [None]
  - Infection [None]
  - Dental caries [None]
  - Gingival pain [None]
  - Bone disorder [None]
  - Graft dysfunction [None]
  - Adverse event [None]
